FAERS Safety Report 8109885 (Version 3)
Quarter: 2015Q2

REPORT INFORMATION
  Report Type: Spontaneous
  Country: US (occurrence: US)
  Receive Date: 20110826
  Receipt Date: 20150512
  Transmission Date: 20150821
  Serious: Yes (Hospitalization)
  Sender: FDA-Public Use
  Company Number: US-ASTRAZENECA-2011SE50564

PATIENT
  Age: 51 Year
  Sex: Male

DRUGS (2)
  1. NEXIUM [Suspect]
     Active Substance: ESOMEPRAZOLE MAGNESIUM
     Route: 048
  2. HYDROMORPHINE [Concomitant]
     Active Substance: HYDROMORPHONE

REACTIONS (8)
  - Haemoptysis [Unknown]
  - Drug dose omission [Unknown]
  - Dyspepsia [Unknown]
  - Ill-defined disorder [Unknown]
  - Rectal haemorrhage [Unknown]
  - Road traffic accident [Unknown]
  - Gastrointestinal injury [Unknown]
  - Sleep disorder due to a general medical condition [Unknown]
